FAERS Safety Report 7306389-8 (Version None)
Quarter: 2011Q1

REPORT INFORMATION
  Report Type: 
  Country: None (occurrence: None)
  Receive Date: 20110119
  Receipt Date: 20100927
  Transmission Date: 20110831
  Serious: Yes (Hospitalization, Other)
  Sender: FDA-Public Use
  Company Number: A-US2010-39556

PATIENT
  Age: 58 Year
  Sex: Male
  Weight: 56.7 kg

DRUGS (4)
  1. TADALAFIL [Concomitant]
  2. TRACLEER [Suspect]
     Indication: PULMONARY ARTERIAL HYPERTENSION
     Dosage: 62 MG, BID, ORAL, 62.5 MG, BID, ORAL
     Route: 048
     Dates: start: 20100910, end: 20100913
  3. TRACLEER [Suspect]
     Indication: PULMONARY ARTERIAL HYPERTENSION
     Dosage: 62 MG, BID, ORAL, 62.5 MG, BID, ORAL
     Route: 048
     Dates: start: 20100821, end: 20100824
  4. COUMADIN [Concomitant]

REACTIONS (4)
  - OEDEMA [None]
  - DYSPNOEA [None]
  - FLUID OVERLOAD [None]
  - OEDEMA PERIPHERAL [None]
